FAERS Safety Report 11635360 (Version 1)
Quarter: 2015Q4

REPORT INFORMATION
  Report Type: Spontaneous
  Country: BR (occurrence: BR)
  Receive Date: 20151016
  Receipt Date: 20151016
  Transmission Date: 20160304
  Serious: Yes (Other)
  Sender: FDA-Public Use
  Company Number: BR-ASTRAZENECA-2015SE98589

PATIENT
  Age: 67 Year
  Sex: Male
  Weight: 135 kg

DRUGS (6)
  1. FORXIGA [Suspect]
     Active Substance: DAPAGLIFLOZIN
     Route: 048
  2. AMLODIPINE [Concomitant]
     Active Substance: AMLODIPINE BESYLATE
  3. ATORVASTATIN [Concomitant]
     Active Substance: ATORVASTATIN
  4. METFORMIN [Concomitant]
     Active Substance: METFORMIN HYDROCHLORIDE
  5. GEMFIBROZIL. [Concomitant]
     Active Substance: GEMFIBROZIL
  6. OLMESARTAN [Concomitant]
     Active Substance: OLMESARTAN

REACTIONS (1)
  - Weight decreased [Unknown]
